FAERS Safety Report 25073327 (Version 2)
Quarter: 2025Q2

REPORT INFORMATION
  Report Type: Other
  Country: DE (occurrence: DE)
  Receive Date: 20250313
  Receipt Date: 20250415
  Transmission Date: 20250716
  Serious: No
  Sender: SUNOVION
  Company Number: DE-BIAL-BIAL-18454

PATIENT

DRUGS (1)
  1. ESLICARBAZEPINE ACETATE [Suspect]
     Active Substance: ESLICARBAZEPINE ACETATE
     Indication: Product used for unknown indication
     Route: 065

REACTIONS (1)
  - No adverse event [Unknown]
